FAERS Safety Report 4526529-3 (Version None)
Quarter: 2004Q4

REPORT INFORMATION
  Report Type: 
  Country: None (occurrence: None)
  Receive Date: 20041214
  Receipt Date: 20041008
  Transmission Date: 20050328
  Serious: Yes (Life-Threatening, Hospitalization, Disabling)
  Sender: FDA-Public Use
  Company Number: US-MERCK-0410USA01381

PATIENT
  Age: 65 Year
  Sex: Male
  Weight: 88 kg

DRUGS (1)
  1. VIOXX [Suspect]
     Indication: ANKYLOSING SPONDYLITIS
     Route: 048
     Dates: start: 20040702, end: 20040923

REACTIONS (9)
  - ATRIAL FLUTTER [None]
  - BLOOD GLUCOSE INCREASED [None]
  - CORONARY ARTERY DISEASE [None]
  - COUGH [None]
  - MYOCARDIAL INFARCTION [None]
  - NODAL ARRHYTHMIA [None]
  - PLEURAL EFFUSION [None]
  - POST PROCEDURAL HAEMORRHAGE [None]
  - PROSTATIC SPECIFIC ANTIGEN INCREASED [None]
